FAERS Safety Report 11776545 (Version 2)
Quarter: 2015Q4

REPORT INFORMATION
  Report Type: Spontaneous
  Country: GR (occurrence: GR)
  Receive Date: 20151125
  Receipt Date: 20151219
  Transmission Date: 20160304
  Serious: Yes (Other)
  Sender: FDA-Public Use
  Company Number: GR-009507513-1511GRC010504

PATIENT
  Age: 58 Year
  Sex: Female
  Weight: 58 kg

DRUGS (3)
  1. INEGY [Suspect]
     Active Substance: EZETIMIBE\SIMVASTATIN
     Indication: DYSLIPIDAEMIA
     Dosage: 1 TABLET DAILY
     Route: 048
     Dates: start: 2013, end: 20151113
  2. PLAQUENIL [Concomitant]
     Active Substance: HYDROXYCHLOROQUINE SULFATE
     Dosage: 200 MG, BID
  3. SALOSPIR [Concomitant]
     Active Substance: ASPIRIN\CAFFEINE
     Dosage: 100 MG, AT NOON

REACTIONS (7)
  - Flatulence [Recovered/Resolved]
  - Contusion [Recovered/Resolved]
  - Dysphagia [Recovered/Resolved]
  - Cerebrovascular accident [Unknown]
  - Neck pain [Unknown]
  - Fatigue [Recovered/Resolved]
  - Epigastric discomfort [Unknown]

NARRATIVE: CASE EVENT DATE: 201311
